FAERS Safety Report 7594971-2 (Version None)
Quarter: 2011Q3

REPORT INFORMATION
  Report Type: 
  Country: None (occurrence: None)
  Receive Date: 20110707
  Receipt Date: 20110701
  Transmission Date: 20111222
  Serious: Yes (Hospitalization)
  Sender: FDA-Public Use
  Company Number: DE-ABBOTT-11P-062-0715171-00

PATIENT
  Sex: Female

DRUGS (5)
  1. HUMIRA [Suspect]
     Dates: start: 20110521
  2. THYROID DRUG [Concomitant]
     Indication: PRODUCT USED FOR UNKNOWN INDICATION
  3. FERRO SANOL [Concomitant]
     Indication: PRODUCT USED FOR UNKNOWN INDICATION
  4. OMEPRAZOLE [Concomitant]
     Indication: PRODUCT USED FOR UNKNOWN INDICATION
     Route: 048
  5. HUMIRA [Suspect]
     Indication: CROHN'S DISEASE
     Route: 058
     Dates: start: 20110215, end: 20110423

REACTIONS (2)
  - INFLAMMATORY MARKER INCREASED [None]
  - COLITIS [None]
